FAERS Safety Report 5007450-3 (Version None)
Quarter: 2006Q2

REPORT INFORMATION
  Report Type: 
  Country: None (occurrence: None)
  Receive Date: 20060517
  Receipt Date: 20060509
  Transmission Date: 20061013
  Serious: Yes (Life-Threatening)
  Sender: FDA-Public Use
  Company Number: HQWYE304413MAR06

PATIENT
  Age: 85 Year
  Sex: Female

DRUGS (19)
  1. MYLOTARG [Suspect]
     Indication: ACUTE MYELOID LEUKAEMIA
     Dosage: 9 MG/M^2 1X PER 1 DAY INTRAVENOUS DRIP
     Route: 041
     Dates: start: 20051205, end: 20051205
  2. MYLOTARG [Suspect]
     Indication: ACUTE MYELOID LEUKAEMIA
     Dosage: 9 MG/M^2 1X PER 1 DAY INTRAVENOUS DRIP
     Route: 041
     Dates: start: 20060131, end: 20060131
  3. CARBENIN (BETAMIPRON/PANIPENEM,) [Suspect]
     Indication: SEPSIS
     Dosage: 2 G 1X PER 1 DAY INTRAVENOUS DRIP
     Route: 041
     Dates: start: 20051212, end: 20051216
  4. CIPROFLOXACIN HCL [Suspect]
     Indication: SEPSIS
     Dosage: 600 MG 1X PER 1 DAY INTRAVENOUS DRIP
     Route: 041
     Dates: start: 20060104, end: 20060116
  5. FOSMICIN S (FOSFOMYCIN SODIUM,) [Suspect]
     Indication: SEPSIS
     Dosage: SEE IMAGE
     Route: 041
     Dates: start: 20051207, end: 20051212
  6. FOSMICIN S (FOSFOMYCIN SODIUM,) [Suspect]
     Indication: SEPSIS
     Dosage: SEE IMAGE
     Route: 041
     Dates: start: 20060119, end: 20060120
  7. FUNGUARD (MICAFUNGIN SODIUM,) [Suspect]
     Indication: SEPSIS
     Dosage: 150 MG 1X PER 1 DAY INTRAVENOUS DRIP
     Route: 041
     Dates: start: 20051217, end: 20060118
  8. MAXIPIME [Suspect]
     Indication: SEPSIS
     Dosage: SEE IMAGE
     Route: 041
     Dates: start: 20051207, end: 20051207
  9. MAXIPIME [Suspect]
     Indication: SEPSIS
     Dosage: SEE IMAGE
     Route: 041
     Dates: start: 20060119, end: 20060120
  10. MAXIPIME [Suspect]
     Indication: SEPSIS
     Dosage: SEE IMAGE
     Route: 041
     Dates: start: 20060131, end: 20060215
  11. MEROPEN (MEROPENEM,) [Suspect]
     Indication: SEPSIS
     Dosage: SEE IMAGE
     Route: 041
     Dates: start: 20051217, end: 20060104
  12. MEROPEN (MEROPENEM,) [Suspect]
     Indication: SEPSIS
     Dosage: SEE IMAGE
     Route: 041
     Dates: start: 20060215, end: 20060221
  13. MINOCYCLINE HCL [Suspect]
     Indication: SEPSIS
     Dosage: 200 MG 1X PER 1 DAY INTRAVENOUS DRIP
     Route: 041
     Dates: start: 20051212, end: 20051216
  14. PAZUCROSS (PAZUFLOXACIN MESILATE,) [Suspect]
     Indication: SEPSIS
     Dosage: 1000 MG 1X PER 1 DAY INTRAVENOUS DRIP
     Route: 041
     Dates: start: 20060110, end: 20060118
  15. PIPERACILLIN SODIUM [Suspect]
     Indication: SEPSIS
     Dosage: 1 G 1X PER 1 DAY INTRAVENOUS DRIP
     Route: 041
     Dates: start: 20060121, end: 20060130
  16. PRODIF (FOSFLUCONAZOLE,) [Suspect]
     Indication: SEPSIS
     Dosage: 400 MG 1X PER 1 DAY INTRAVENOUS
     Route: 042
     Dates: start: 20051212, end: 20051216
  17. VANCOMYCIN [Suspect]
     Indication: SEPSIS
     Dosage: 1 G 1X PER 1 DAY INTRAVENOUS DRIP
     Route: 041
     Dates: start: 20051229, end: 20060118
  18. ACLARUBICIN HYDROCHLORIDE [Concomitant]
  19. ENOCITABINE [Concomitant]

REACTIONS (16)
  - ACUTE MYELOID LEUKAEMIA [None]
  - ALANINE AMINOTRANSFERASE INCREASED [None]
  - ASPARTATE AMINOTRANSFERASE INCREASED [None]
  - BLOOD ALBUMIN DECREASED [None]
  - BLOOD ALKALINE PHOSPHATASE INCREASED [None]
  - BLOOD BILIRUBIN INCREASED [None]
  - BLOOD CREATININE INCREASED [None]
  - BLOOD UREA INCREASED [None]
  - DISEASE PROGRESSION [None]
  - FEBRILE NEUTROPENIA [None]
  - HYPOPROTEINAEMIA [None]
  - LIVER DISORDER [None]
  - MALNUTRITION [None]
  - PANCYTOPENIA [None]
  - PROTEIN TOTAL DECREASED [None]
  - RENAL DISORDER [None]
